FAERS Safety Report 13286365 (Version 1)
Quarter: 2017Q1

REPORT INFORMATION
  Report Type: Other
  Country: IN (occurrence: IN)
  Receive Date: 20170302
  Receipt Date: 20170302
  Transmission Date: 20170428
  Serious: Yes (Other)
  Sender: FDA-Public Use
  Company Number: IN-SEPTODONT-201703881

PATIENT
  Age: 32 Year
  Sex: Female

DRUGS (1)
  1. 2% LIGNOCAINE WITH 1:80,000 EPINEPHRINE [Suspect]
     Active Substance: EPINEPHRINE\LIDOCAINE

REACTIONS (5)
  - Vision blurred [Recovered/Resolved]
  - Anxiety [Recovered/Resolved]
  - VIth nerve paralysis [Recovered/Resolved]
  - Nervousness [Recovered/Resolved]
  - Diplopia [None]
